FAERS Safety Report 7601904-9 (Version None)
Quarter: 2011Q3

REPORT INFORMATION
  Report Type: 
  Country: None (occurrence: None)
  Receive Date: 20110711
  Receipt Date: 20110629
  Transmission Date: 20111222
  Serious: Yes (Other)
  Sender: FDA-Public Use
  Company Number: FR-VERTEX PHARMACEUTICALS INC.-AE-2011-000402

PATIENT
  Sex: Male
  Weight: 87 kg

DRUGS (11)
  1. ALLOPURINOL [Concomitant]
     Indication: HYPERURICAEMIA
     Dates: start: 20000101
  2. TRANDOLAPRIL [Concomitant]
     Indication: HYPERTENSION
     Route: 048
     Dates: start: 20070101
  3. DESLORATADINE [Concomitant]
     Indication: URTICARIA
     Route: 048
     Dates: start: 20090101
  4. VX-950 [Suspect]
     Indication: HEPATITIS C
  5. PRAVASTATIN [Concomitant]
     Indication: HYPERTRIGLYCERIDAEMIA
     Route: 048
     Dates: start: 20020101
  6. RIBAVIRIN [Concomitant]
     Indication: HEPATITIS C
     Route: 048
  7. PEGINTERFERON ALFA-2A [Concomitant]
     Indication: HEPATITIS C
     Route: 058
  8. VERPAMIL HCL [Concomitant]
     Indication: HYPERTENSION
     Route: 048
  9. ADANCOR [Concomitant]
     Indication: CARDIAC DISORDER
     Dates: start: 20060101
  10. ASPIRIN [Concomitant]
     Indication: CARDIAC DISORDER
     Route: 048
  11. LANZOR [Concomitant]
     Indication: ABDOMINAL PAIN UPPER
     Route: 048
     Dates: start: 20060101

REACTIONS (2)
  - PRURIGO [None]
  - INAPPROPRIATE SCHEDULE OF DRUG ADMINISTRATION [None]
